FAERS Safety Report 24428785 (Version 1)
Quarter: 2024Q4

REPORT INFORMATION
  Report Type: Report from Study
  Country: ES (occurrence: ES)
  Receive Date: 20241011
  Receipt Date: 20241011
  Transmission Date: 20250115
  Serious: Yes (Other)
  Sender: JOHNSON AND JOHNSON
  Company Number: ES-LAT-249645280510Em

PATIENT

DRUGS (15)
  1. STELARA [Suspect]
     Active Substance: USTEKINUMAB
     Indication: Crohn^s disease
     Dosage: 6 PATIENTS
     Route: 040
  2. STELARA [Suspect]
     Active Substance: USTEKINUMAB
     Indication: Colitis ulcerative
     Dosage: 20 PATIENTS
     Route: 040
  3. STELARA [Suspect]
     Active Substance: USTEKINUMAB
     Dosage: 5 PATIENTS
     Route: 040
  4. STELARA [Suspect]
     Active Substance: USTEKINUMAB
     Dosage: N=23
     Route: 058
  5. STELARA [Suspect]
     Active Substance: USTEKINUMAB
     Dosage: N=7
     Route: 058
  6. STELARA [Suspect]
     Active Substance: USTEKINUMAB
     Dosage: IV MAINTENANCE POSOLOGY BEFORE MODIFICATION:1?IV MAINTENANCE POSOLOGY BEFORE MODIFICATION :2
     Route: 040
  7. STELARA [Suspect]
     Active Substance: USTEKINUMAB
     Dosage: IV MAINTENANCE POSOLOGY BEFORE MODIFICATION:1?IV MAINTENANCE POSOLOGY BEFORE MODIFICATION :2
     Route: 040
  8. STELARA [Suspect]
     Active Substance: USTEKINUMAB
     Dosage: IV MAINTENANCE POSOLOGY BEFORE MODIFICATION:3?IV MAINTENANCE POSOLOGY BEFORE MODIFICATION :6
     Route: 040
  9. STELARA [Suspect]
     Active Substance: USTEKINUMAB
     Dosage: IV MAINTENANCE POSOLOGY BEFORE MODIFICATION:2?IV MAINTENANCE POSOLOGY BEFORE MODIFICATION :2
     Route: 040
  10. STELARA [Suspect]
     Active Substance: USTEKINUMAB
     Dosage: IV MAINTENANCE POSOLOGY BEFORE MODIFICATION:4?IV MAINTENANCE POSOLOGY BEFORE MODIFICATION :3
     Route: 040
  11. STELARA [Suspect]
     Active Substance: USTEKINUMAB
     Dosage: IV MAINTENANCE POSOLOGY BEFORE MODIFICATION:14?IV MAINTENANCE POSOLOGY BEFORE MODIFICATION :13
     Route: 040
  12. STELARA [Suspect]
     Active Substance: USTEKINUMAB
     Dosage: IV MAINTENANCE POSOLOGY BEFORE MODIFICATION:1?IV MAINTENANCE POSOLOGY BEFORE MODIFICATION :3
     Route: 040
  13. STELARA [Suspect]
     Active Substance: USTEKINUMAB
     Dosage: IV MAINTENANCE POSOLOGY BEFORE MODIFICATION:5?IV MAINTENANCE POSOLOGY BEFORE MODIFICATION :0
     Route: 040
  14. PREDNISONE [Concomitant]
     Active Substance: PREDNISONE
  15. MESALAMINE [Concomitant]
     Active Substance: MESALAMINE

REACTIONS (6)
  - Tubo-ovarian abscess [Unknown]
  - Herpes ophthalmic [Recovering/Resolving]
  - Adverse event [Unknown]
  - Therapeutic response decreased [Unknown]
  - Inappropriate schedule of product administration [Unknown]
  - Off label use [Unknown]
